FAERS Safety Report 23070122 (Version 1)
Quarter: 2023Q4

REPORT INFORMATION
  Report Type: Spontaneous
  Country: CA (occurrence: CA)
  Receive Date: 20231016
  Receipt Date: 20231016
  Transmission Date: 20240110
  Serious: Yes (Other)
  Sender: FDA-Public Use
  Company Number: CA-PFIZER INC-202300321894

PATIENT
  Age: 30 Year
  Sex: Female

DRUGS (4)
  1. RIFABUTIN [Suspect]
     Active Substance: RIFABUTIN
     Indication: Disseminated tuberculosis
     Dosage: UNK
     Route: 065
  2. ETHAMBUTOL [Suspect]
     Active Substance: ETHAMBUTOL HYDROCHLORIDE
     Indication: Disseminated tuberculosis
     Dosage: UNK
     Route: 065
  3. MOXIFLOXACIN [Suspect]
     Active Substance: MOXIFLOXACIN
     Indication: Disseminated tuberculosis
     Dosage: UNK
     Route: 065
  4. BEDAQUILINE [Concomitant]
     Active Substance: BEDAQUILINE
     Indication: Disseminated tuberculosis
     Dosage: UNK
     Route: 065

REACTIONS (2)
  - Hepatotoxicity [Recovering/Resolving]
  - Off label use [Unknown]
